FAERS Safety Report 23641291 (Version 1)
Quarter: 2024Q1

REPORT INFORMATION
  Report Type: Other
  Country: JP (occurrence: JP)
  Receive Date: 20240318
  Receipt Date: 20240318
  Transmission Date: 20240410
  Serious: Yes (Other)
  Sender: FDA-Public Use
  Company Number: JP-CHUGAI-2024007260

PATIENT
  Age: 82 Year
  Sex: Female

DRUGS (1)
  1. VABYSMO [Suspect]
     Active Substance: FARICIMAB\FARICIMAB-SVOA
     Indication: Neovascular age-related macular degeneration
     Dosage: LEFT EYE, STRENGTH: 120 MG/ML
     Route: 050
     Dates: start: 20221124, end: 20230126

REACTIONS (1)
  - Retinal degeneration [Not Recovered/Not Resolved]

NARRATIVE: CASE EVENT DATE: 20230223
